FAERS Safety Report 6872984-3 (Version None)
Quarter: 2010Q3

REPORT INFORMATION
  Report Type: 
  Country: None (occurrence: None)
  Receive Date: 20100723
  Receipt Date: 20100711
  Transmission Date: 20110219
  Serious: Yes (Hospitalization)
  Sender: FDA-Public Use
  Company Number: IL-GENENTECH-304223

PATIENT
  Sex: Male

DRUGS (1)
  1. MABTHERA [Suspect]
     Indication: PEMPHIGUS
     Dosage: 700 MG, 1/WEEK
     Route: 042

REACTIONS (1)
  - CONFUSIONAL STATE [None]
